FAERS Safety Report 8377920-9 (Version None)
Quarter: 2012Q2

REPORT INFORMATION
  Report Type: 
  Country: None (occurrence: None)
  Receive Date: 20120522
  Receipt Date: 20120508
  Transmission Date: 20120825
  Serious: Yes (Hospitalization)
  Sender: FDA-Public Use
  Company Number: US-ELI_LILLY_AND_COMPANY-US201204005159

PATIENT
  Sex: Female

DRUGS (9)
  1. VIVELLE [Concomitant]
     Dosage: 0.05 MG, 2/W
     Route: 062
  2. OMEPRAZOLE [Concomitant]
     Dosage: 20 MG, QD
  3. OPANA [Concomitant]
     Dosage: 40 MG, TID
  4. NUVIGIL [Concomitant]
     Dosage: 250 MG, QD
  5. VICODIN [Concomitant]
     Dosage: 1 DF, PRN
  6. DIAZEPAM [Concomitant]
     Dosage: 5 MG, PRN
  7. LYRICA [Concomitant]
     Dosage: 100 MG, TID
  8. CYMBALTA [Suspect]
     Indication: FIBROMYALGIA
     Dosage: 60 MG, QD
     Dates: start: 20120124, end: 20120314
  9. OXYCONTIN [Concomitant]

REACTIONS (9)
  - NAUSEA [None]
  - FATIGUE [None]
  - DIZZINESS [None]
  - VISUAL IMPAIRMENT [None]
  - FEELING ABNORMAL [None]
  - CONSTIPATION [None]
  - ABDOMINAL DISTENSION [None]
  - DYSPEPSIA [None]
  - DRY MOUTH [None]
